FAERS Safety Report 18172635 (Version 1)
Quarter: 2020Q3

REPORT INFORMATION
  Report Type: Report from Study
  Country: None (occurrence: US)
  Receive Date: 20200820
  Receipt Date: 20200820
  Transmission Date: 20201103
  Serious: Yes (Hospitalization, Other)
  Sender: FDA-Public Use
  Company Number: US-ABBVIE-20K-163-3527651-00

PATIENT
  Age: 35 Year
  Sex: Female

DRUGS (8)
  1. CYMBALTA [Suspect]
     Active Substance: DULOXETINE HYDROCHLORIDE
     Indication: DEPRESSION
     Dosage: BEFORE LAST MENSTRUAL PERIOD TILL THIRTY ONE WEEKS AND SIX DAYS PREGNANT
     Route: 065
  2. CREON [Suspect]
     Active Substance: PANCRELIPASE AMYLASE\PANCRELIPASE LIPASE\PANCRELIPASE PROTEASE
     Indication: PANCREATITIS
     Dosage: BEFORE LAST MENSTRUAL PERIOD TILL THIRTY ONE WEEKS AND SIX DAYS PREGNANT
     Route: 048
  3. LANTUS [Suspect]
     Active Substance: INSULIN GLARGINE
     Indication: TYPE 1 DIABETES MELLITUS
     Dosage: BEFORE LAST MENSTRUAL PERIOD TILL THIRTY ONE WEEKS AND SIX DAYS PREGNANT
     Route: 065
  4. ABILIFY [Suspect]
     Active Substance: ARIPIPRAZOLE
     Indication: ANXIETY
     Dosage: BEFORE LAST MENSTRUAL PERIOD TILL END OF PREGNANCY
     Route: 065
  5. OMEPRAZOLE. [Suspect]
     Active Substance: OMEPRAZOLE
     Indication: NAUSEA
     Dosage: BEFORE LAST MENSTRUAL PERIOD TILL THIRTY ONE WEEKS AND SIX DAYS PREGNANT
     Route: 065
  6. APIDRA [Suspect]
     Active Substance: INSULIN GLULISINE
     Indication: TYPE 2 DIABETES MELLITUS
     Dosage: BEFORE LAST MENSTRUAL PERIOD TILL THIRTY ONE WEEKS AND SIX DAYS PREGNANT
     Route: 065
  7. PERCOCET [OXYCODONE HYDROCHLORIDE;OXYCODONE TEREPHTHALATE;PARACETAMOL] [Suspect]
     Active Substance: ACETAMINOPHEN\OXYCODONE HYDROCHLORIDE\OXYCODONE TEREPHTHALATE
     Indication: PANCREATITIS
     Dosage: BEFORE LAST MENSTRUAL PERIOD TILL FOUR WEEKS AND SIX DAYS PREGNANT
     Route: 065
  8. SYNTHROID [Suspect]
     Active Substance: LEVOTHYROXINE SODIUM
     Indication: HYPOTHYROIDISM
     Dosage: BEFORE LAST MENSTRUAL PERIOD TILL THIRTY ONE WEEKS AND SIX DAYS PREGNANT
     Route: 048

REACTIONS (12)
  - Premature labour [Unknown]
  - Postpartum haemorrhage [Recovered/Resolved]
  - Impaired gastric emptying [Unknown]
  - Retained products of conception [Recovered/Resolved]
  - Postpartum sepsis [Recovered/Resolved]
  - Pancreatic mass [Unknown]
  - Thrombocytosis [Unknown]
  - Product use in unapproved indication [Unknown]
  - Hyperemesis gravidarum [Recovered/Resolved]
  - Maternal exposure during pregnancy [Unknown]
  - Seizure [Recovered/Resolved]
  - Autoimmune pancreatitis [Recovered/Resolved]

NARRATIVE: CASE EVENT DATE: 20160920
